FAERS Safety Report 6423670-5 (Version None)
Quarter: 2009Q4

REPORT INFORMATION
  Report Type: 
  Country: None (occurrence: None)
  Receive Date: 20091102
  Receipt Date: 20091027
  Transmission Date: 20100525
  Serious: Yes (Disabling, Other)
  Sender: FDA-Public Use
  Company Number: US-MERCK-0805USA04873

PATIENT
  Age: 58 Year
  Sex: Female

DRUGS (3)
  1. FOSAMAX [Suspect]
     Indication: OSTEOPOROSIS
     Route: 048
     Dates: start: 20020501, end: 20020601
  2. FOSAMAX [Suspect]
     Route: 048
     Dates: start: 20051201, end: 20060101
  3. FOSAMAX [Suspect]
     Route: 048
     Dates: start: 20050601, end: 20071101

REACTIONS (21)
  - ABDOMINAL DISCOMFORT [None]
  - ABDOMINAL PAIN UPPER [None]
  - ADVERSE DRUG REACTION [None]
  - ANXIETY [None]
  - BONE DISORDER [None]
  - CONSTIPATION [None]
  - DEPRESSION [None]
  - DERMAL CYST [None]
  - DRUG INEFFECTIVE [None]
  - DYSPEPSIA [None]
  - GASTROOESOPHAGEAL REFLUX DISEASE [None]
  - HYPERTENSION [None]
  - IRRITABLE BOWEL SYNDROME [None]
  - JAW DISORDER [None]
  - MALAISE [None]
  - ORAL PAIN [None]
  - OSTEONECROSIS [None]
  - RESORPTION BONE INCREASED [None]
  - SALIVARY GLAND CANCER [None]
  - TINNITUS [None]
  - URINARY INCONTINENCE [None]
